FAERS Safety Report 22039185 (Version 1)
Quarter: 2023Q1

REPORT INFORMATION
  Report Type: Spontaneous
  Country: US (occurrence: None)
  Receive Date: 20230223
  Receipt Date: 20230223
  Transmission Date: 20230417
  Serious: Yes (Death)
  Sender: FDA-Public Use
  Company Number: None

PATIENT
  Age: 61 Year
  Sex: Male

DRUGS (1)
  1. PIRFENIDONE [Suspect]
     Active Substance: PIRFENIDONE
     Indication: Interstitial lung disease
     Dosage: FREQUENCY : 3 TIMES A DAY;?
     Route: 048
     Dates: start: 20211019, end: 20230203

REACTIONS (4)
  - Acute respiratory failure [None]
  - Condition aggravated [None]
  - Interstitial lung disease [None]
  - Rheumatoid arthritis [None]

NARRATIVE: CASE EVENT DATE: 20230204
